FAERS Safety Report 22240504 (Version 1)
Quarter: 2023Q2

REPORT INFORMATION
  Report Type: Spontaneous
  Country: US (occurrence: None)
  Receive Date: 20230419
  Receipt Date: 20230419
  Transmission Date: 20230722
  Serious: No
  Sender: FDA-Public Use
  Company Number: None

PATIENT
  Age: 53 Year
  Sex: Male
  Weight: 104.33 kg

DRUGS (16)
  1. WELIREG [Suspect]
     Active Substance: BELZUTIFAN
     Indication: Renal cancer
     Dosage: FREQUENCY : DAILY;?
     Route: 048
  2. ALLOPURINOL [Concomitant]
     Active Substance: ALLOPURINOL
  3. ATORVASTATIN [Concomitant]
     Active Substance: ATORVASTATIN
  4. CARVEDILOL [Concomitant]
     Active Substance: CARVEDILOL
  5. CIPROFLOXACIN [Concomitant]
     Active Substance: CIPROFLOXACIN
  6. DEXAMETHASONE [Concomitant]
     Active Substance: DEXAMETHASONE
  7. EZETIMIBE [Concomitant]
     Active Substance: EZETIMIBE
  8. FENTANYL [Concomitant]
     Active Substance: FENTANYL
  9. IBUPROFEN [Concomitant]
     Active Substance: IBUPROFEN
  10. ALBUTEROL\IPRATROPIUM [Concomitant]
     Active Substance: ALBUTEROL\IPRATROPIUM
  11. LEVOTHYROXINE [Concomitant]
     Active Substance: LEVOTHYROXINE
  12. LINZESS [Concomitant]
     Active Substance: LINACLOTIDE
  13. PANTOPRAZOLE [Concomitant]
     Active Substance: PANTOPRAZOLE
  14. PERCOCET [Concomitant]
     Active Substance: ACETAMINOPHEN\OXYCODONE HYDROCHLORIDE
  15. MELATONIN [Concomitant]
     Active Substance: MELATONIN
  16. VALIUM [Concomitant]
     Active Substance: DIAZEPAM

REACTIONS (1)
  - Hospice care [None]
